FAERS Safety Report 7722681-7 (Version None)
Quarter: 2011Q3

REPORT INFORMATION
  Report Type: 
  Country: None (occurrence: None)
  Receive Date: 20110831
  Receipt Date: 20110822
  Transmission Date: 20111222
  Serious: Yes (Other)
  Sender: FDA-Public Use
  Company Number: US-ASTRAZENECA-2011SE43932

PATIENT
  Age: 53 Year
  Sex: Female

DRUGS (2)
  1. NEXIUM [Suspect]
     Route: 048
  2. SYMBICORT [Suspect]
     Route: 055

REACTIONS (9)
  - CHRONIC OBSTRUCTIVE PULMONARY DISEASE [None]
  - DYSPNOEA [None]
  - SCOLIOSIS [None]
  - ASPHYXIA [None]
  - MULTIPLE SCLEROSIS [None]
  - DRUG DOSE OMISSION [None]
  - DYSGRAPHIA [None]
  - INSOMNIA [None]
  - MALAISE [None]
